FAERS Safety Report 7019125-X (Version None)
Quarter: 2010Q3

REPORT INFORMATION
  Report Type: 
  Country: None (occurrence: None)
  Receive Date: 20100928
  Receipt Date: 20100916
  Transmission Date: 20110219
  Serious: Yes (Hospitalization)
  Sender: FDA-Public Use
  Company Number: B0674800A

PATIENT
  Sex: Male

DRUGS (4)
  1. ZOFRAN [Suspect]
     Route: 065
     Dates: start: 20100728, end: 20100730
  2. TAXOTERE [Suspect]
     Dosage: 75MGM2 PER DAY
     Route: 042
     Dates: start: 20100728, end: 20100728
  3. CISPLATIN [Suspect]
     Dosage: 75MGM2 SINGLE DOSE
     Route: 042
     Dates: start: 20100728, end: 20100728
  4. SOLU-MEDROL [Suspect]
     Route: 042
     Dates: start: 20100728, end: 20100728

REACTIONS (4)
  - AGRANULOCYTOSIS [None]
  - DIARRHOEA [None]
  - GRAND MAL CONVULSION [None]
  - PYREXIA [None]
